FAERS Safety Report 11978376 (Version 2)
Quarter: 2016Q1

REPORT INFORMATION
  Report Type: Report from Study
  Country: US (occurrence: US)
  Receive Date: 20160129
  Receipt Date: 20160203
  Transmission Date: 20160526
  Serious: No
  Sender: FDA-Public Use
  Company Number: US-ABBVIE-15K-163-1411724-00

PATIENT
  Sex: Female
  Weight: 65.83 kg

DRUGS (3)
  1. HUMIRA [Suspect]
     Active Substance: ADALIMUMAB
     Indication: PSORIATIC ARTHROPATHY
     Route: 058
     Dates: start: 2013
  2. PREDNISONE. [Concomitant]
     Active Substance: PREDNISONE
     Indication: PSORIATIC ARTHROPATHY
  3. SULFAMETHOXAZOLE AND TRIMETHOPRIM [Suspect]
     Active Substance: SULFAMETHOXAZOLE\TRIMETHOPRIM
     Indication: LYME DISEASE
     Route: 065
     Dates: start: 201505

REACTIONS (8)
  - Musculoskeletal pain [Recovering/Resolving]
  - Headache [Recovering/Resolving]
  - Neck pain [Recovering/Resolving]
  - Irritable bowel syndrome [Recovering/Resolving]
  - Mobility decreased [Recovering/Resolving]
  - Lyme disease [Not Recovered/Not Resolved]
  - Rash [Unknown]
  - Arthropod bite [Recovered/Resolved]

NARRATIVE: CASE EVENT DATE: 2014
